FAERS Safety Report 4677135-1 (Version None)
Quarter: 2005Q2

REPORT INFORMATION
  Report Type: 
  Country: None (occurrence: None)
  Receive Date: 20050526
  Receipt Date: 20050526
  Transmission Date: 20051028
  Serious: Yes (Death, Life-Threatening, Hospitalization)
  Sender: FDA-Public Use
  Company Number: None

PATIENT
  Age: 41 Year
  Sex: Male
  Weight: 86.3 kg

DRUGS (13)
  1. CYTOXAN [Suspect]
     Indication: CHEMOTHERAPY
     Dosage: 4260MG   QD   INTRAVENOUS
     Route: 042
     Dates: start: 20040816, end: 20040817
  2. BUSULFAN [Suspect]
     Indication: STEM CELL TRANSPLANT
     Dosage: 72MG  QD   INTRAVENOUS
     Route: 042
     Dates: start: 20040812, end: 20040815
  3. PREVACID [Concomitant]
  4. LOMOTIL [Concomitant]
  5. PREDNISONE [Concomitant]
  6. VALTREX [Concomitant]
  7. VORICONAZOLE [Concomitant]
  8. CLONAZAPINE [Concomitant]
  9. METHADONE HCL [Concomitant]
  10. FLAGYL [Concomitant]
  11. PIPTAZO [Concomitant]
  12. AZITHROMYCIN [Concomitant]
  13. VANCOMYCIN [Concomitant]

REACTIONS (7)
  - COMPLICATIONS OF TRANSPLANT SURGERY [None]
  - CORD BLOOD TRANSPLANT THERAPY [None]
  - METABOLIC ACIDOSIS [None]
  - PNEUMONIA [None]
  - RENAL FAILURE [None]
  - RESPIRATORY FAILURE [None]
  - SEPSIS [None]
